FAERS Safety Report 18584262 (Version 2)
Quarter: 2021Q2

REPORT INFORMATION
  Report Type: Spontaneous
  Country: US (occurrence: US)
  Receive Date: 20201207
  Receipt Date: 20210415
  Transmission Date: 20210717
  Serious: Yes (Other)
  Sender: FDA-Public Use
  Company Number: US-GLAXOSMITHKLINE-US2020GSK241184

PATIENT
  Sex: Male

DRUGS (10)
  1. ZANTAC [Suspect]
     Active Substance: RANITIDINE HYDROCHLORIDE
     Indication: DYSENTERY
  2. RANITIDINE HYDROCHLORIDE. [Suspect]
     Active Substance: RANITIDINE HYDROCHLORIDE
     Indication: PRODUCT USED FOR UNKNOWN INDICATION
     Dosage: 70 MG WEEKLY
     Route: 065
     Dates: start: 198804, end: 201602
  3. RANITIDINE. [Suspect]
     Active Substance: RANITIDINE
     Indication: WEIGHT DECREASED
     Dosage: 75 MG, WE
     Route: 065
     Dates: start: 198804, end: 201602
  4. RANITIDINE. [Suspect]
     Active Substance: RANITIDINE
     Indication: DYSENTERY
  5. ZANTAC [Suspect]
     Active Substance: RANITIDINE HYDROCHLORIDE
     Indication: DYSENTERY
  6. ZANTAC [Suspect]
     Active Substance: RANITIDINE HYDROCHLORIDE
     Indication: WEIGHT DECREASED
     Dosage: 75 MG WE
     Route: 065
     Dates: start: 198804, end: 201602
  7. RANITIDINE CAPSULE [Suspect]
     Active Substance: RANITIDINE
     Indication: WEIGHT DECREASED
     Dosage: 75 MG, WE
     Route: 065
     Dates: start: 198804, end: 201602
  8. RANITIDINE HYDROCHLORIDE. [Suspect]
     Active Substance: RANITIDINE HYDROCHLORIDE
     Indication: PRODUCT USED FOR UNKNOWN INDICATION
     Dosage: 75 MG WEEKLY
     Route: 065
     Dates: start: 198804, end: 201602
  9. ZANTAC [Suspect]
     Active Substance: RANITIDINE HYDROCHLORIDE
     Indication: WEIGHT DECREASED
     Dosage: 75 MG WE
     Route: 065
     Dates: start: 198804, end: 201602
  10. RANITIDINE CAPSULE [Suspect]
     Active Substance: RANITIDINE
     Indication: DYSENTERY

REACTIONS (2)
  - Hepatic cancer [Unknown]
  - Colorectal cancer [Unknown]
